FAERS Safety Report 11055231 (Version 1)
Quarter: 2015Q2

REPORT INFORMATION
  Report Type: Spontaneous
  Country: US (occurrence: None)
  Receive Date: 20150421
  Receipt Date: 20150421
  Transmission Date: 20150821
  Serious: Yes (Other)
  Sender: FDA-Public Use
  Company Number: None

PATIENT
  Age: 60 Year
  Sex: Male
  Weight: 83 kg

DRUGS (2)
  1. ACETAZOLAMIDE 250 MG LANNETT [Suspect]
     Active Substance: ACETAZOLAMIDE
     Indication: INVESTIGATION
     Dosage: ACETAZOLAMIDE 500 MG (TWO 250MG)  ONCE PO
     Route: 048
     Dates: start: 20150330
  2. LATANOPROST 0.005% GREENSTONE [Suspect]
     Active Substance: LATANOPROST
     Indication: INVESTIGATION
     Dosage: LATANOPROST 1 GTT  QHS  TOPICAL
     Route: 061
     Dates: start: 20150324, end: 20150330

REACTIONS (1)
  - Choroidal effusion [None]

NARRATIVE: CASE EVENT DATE: 20150331
